FAERS Safety Report 4785584-6 (Version None)
Quarter: 2005Q4

REPORT INFORMATION
  Report Type: 
  Country: None (occurrence: None)
  Receive Date: 20051003
  Receipt Date: 20050924
  Transmission Date: 20060501
  Serious: Yes (Other)
  Sender: FDA-Public Use
  Company Number: GB-GLAXOSMITHKLINE-B0394929A

PATIENT
  Age: 41 Year
  Weight: 68 kg

DRUGS (9)
  1. AMOXICILLIN AND CLAVULANATE POTASSIUM [Suspect]
     Indication: PROPHYLAXIS
     Dosage: .3MG UNKNOWN
     Route: 042
     Dates: start: 20050909, end: 20050909
  2. TEMAZEPAM [Concomitant]
     Dosage: 10MG PER DAY
     Route: 048
  3. PROPOFOL [Concomitant]
     Route: 065
  4. ATRACURIUM BESYLATE [Concomitant]
     Route: 065
  5. FENTANYL [Concomitant]
     Route: 065
  6. MORPHINE [Concomitant]
     Route: 065
  7. CYCLIZINE [Concomitant]
     Route: 065
  8. GRANISETRON [Concomitant]
     Route: 065
  9. KETOROLAC TROMETHAMINE [Concomitant]
     Route: 065

REACTIONS (3)
  - BLOOD PRESSURE DECREASED [None]
  - CARDIOVASCULAR DISORDER [None]
  - FLUSHING [None]
